FAERS Safety Report 21896079 (Version 1)
Quarter: 2023Q1

REPORT INFORMATION
  Report Type: Spontaneous
  Country: FR (occurrence: FR)
  Receive Date: 20230123
  Receipt Date: 20230123
  Transmission Date: 20230417
  Serious: Yes (Life-Threatening, Hospitalization, Other)
  Sender: FDA-Public Use
  Company Number: FR-AFSSAPS-MP2023000049

PATIENT
  Age: 48 Year
  Sex: Female
  Weight: 63.2 kg

DRUGS (3)
  1. ALPRAZOLAM [Suspect]
     Active Substance: ALPRAZOLAM
     Indication: Poisoning deliberate
     Dosage: UNK
     Route: 065
     Dates: start: 20220727, end: 20220727
  2. LORMETAZEPAM [Suspect]
     Active Substance: LORMETAZEPAM
     Indication: Poisoning deliberate
     Dosage: UNK
     Route: 065
     Dates: start: 20220727, end: 20220727
  3. SURMONTIL [Suspect]
     Active Substance: TRIMIPRAMINE MALEATE
     Indication: Poisoning deliberate
     Dosage: UNK
     Route: 065
     Dates: start: 20220727, end: 20220727

REACTIONS (2)
  - Coma [Recovered/Resolved]
  - Toxicity to various agents [Recovered/Resolved]

NARRATIVE: CASE EVENT DATE: 20220727
